FAERS Safety Report 26219187 (Version 1)
Quarter: 2025Q4

REPORT INFORMATION
  Report Type: Spontaneous
  Country: EU (occurrence: None)
  Receive Date: 20251231
  Receipt Date: 20251231
  Transmission Date: 20260118
  Serious: Yes (Other)
  Sender: ORGANON
  Company Number: None

PATIENT
  Age: 32 Year
  Sex: Female

DRUGS (1)
  1. NUVARING [Suspect]
     Active Substance: ETHINYL ESTRADIOL\ETONOGESTREL
     Indication: Contraception
     Dosage: NUVARING 1 VAGINAL DELIVERY SYSTEM 0.120 MG + 0.015 MG/DAY
     Dates: start: 20190601, end: 20190619

REACTIONS (11)
  - Hypersomnia [Recovered/Resolved]
  - Asthenia [Recovered/Resolved]
  - Asthenia [Recovered/Resolved]
  - Anxiety [Recovered/Resolved]
  - Nervousness [Recovered/Resolved]
  - Vertigo [Recovered/Resolved]
  - Panic attack [Recovered/Resolved]
  - Affect lability [Recovered/Resolved]
  - Euphoric mood [Recovered/Resolved]
  - Libido increased [Recovered/Resolved]
  - Depressed mood [Recovered/Resolved]

NARRATIVE: CASE EVENT DATE: 20190604
